FAERS Safety Report 6634720-5 (Version None)
Quarter: 2010Q1

REPORT INFORMATION
  Report Type: 
  Country: None (occurrence: None)
  Receive Date: 20100311
  Receipt Date: 20100311
  Transmission Date: 20100710
  Serious: No
  Sender: FDA-Public Use
  Company Number: None

PATIENT
  Age: 69 Year
  Sex: Male
  Weight: 67.1324 kg

DRUGS (2)
  1. NITROFURANTOIN (MONOHYDRATE/MACROCRYSTALS) [Suspect]
     Indication: CYSTITIS
     Dosage: 100 MG 3 TIMES WEEKLY BY MOUTH
     Route: 048
     Dates: start: 20091229, end: 20100217
  2. NITROFURANTOIN (MONOHYDRATE/MACROCRYSTALS) [Suspect]
     Indication: PROPHYLAXIS
     Dosage: 100 MG 3 TIMES WEEKLY BY MOUTH
     Route: 048
     Dates: start: 20091229, end: 20100217

REACTIONS (18)
  - ABDOMINAL PAIN [None]
  - CHILLS [None]
  - CHROMATURIA [None]
  - COUGH [None]
  - DECREASED APPETITE [None]
  - DEPRESSION [None]
  - DIARRHOEA [None]
  - DYSGEUSIA [None]
  - FATIGUE [None]
  - MALAISE [None]
  - NAUSEA [None]
  - OESOPHAGEAL DISCOMFORT [None]
  - OROPHARYNGEAL DISCOMFORT [None]
  - PROSTATOMEGALY [None]
  - PYREXIA [None]
  - SOMNOLENCE [None]
  - VOMITING [None]
  - WEIGHT DECREASED [None]
